FAERS Safety Report 8554991-8 (Version None)
Quarter: 2012Q3

REPORT INFORMATION
  Report Type: 
  Country: None (occurrence: None)
  Receive Date: 20120731
  Receipt Date: 20120727
  Transmission Date: 20120928
  Serious: Yes (Hospitalization)
  Sender: FDA-Public Use
  Company Number: US-PFIZER INC-2012171096

PATIENT
  Sex: Male

DRUGS (10)
  1. AXITINIB [Suspect]
     Indication: METASTATIC RENAL CELL CARCINOMA
     Dosage: MG, 2X/DAY
     Route: 048
     Dates: start: 20120706, end: 20120713
  2. GLIMEPIRIDE [Concomitant]
     Indication: DIABETES MELLITUS
     Dosage: 1 MG, 2X/DAY
     Route: 048
     Dates: start: 20110131
  3. METOPROLOL [Concomitant]
     Indication: HYPERTENSION
     Dosage: 50 MG, 2X/DAY
     Route: 048
  4. CITALOPRAM [Concomitant]
     Indication: DEPRESSION
     Dosage: 20 MG, 1X/DAY
     Route: 048
     Dates: start: 20120116
  5. METFORMIN HYDROCHLORIDE [Concomitant]
     Indication: DIABETES MELLITUS
     Dosage: 500 MG, 1X/DAY
     Route: 048
  6. PROCHLORPERAZINE [Concomitant]
     Indication: NAUSEA
     Dosage: 10 MG, AS NEEDED
     Route: 048
     Dates: start: 20110223
  7. COLACE [Concomitant]
     Indication: CONSTIPATION
     Dosage: 100 MG, AS NEEDED
     Route: 048
  8. PF-04856884 [Suspect]
     Indication: METASTATIC RENAL CELL CARCINOMA
     Dosage: MG, WEEKLY
     Route: 042
     Dates: start: 20120706, end: 20120712
  9. GABAPENTIN [Concomitant]
     Indication: NEUROPATHY PERIPHERAL
     Dosage: 300 MG, 2X/DAY
     Route: 048
     Dates: start: 20110726
  10. LASIX [Concomitant]
     Indication: OEDEMA
     Dosage: 20 MG, AS NEEDED
     Route: 048
     Dates: start: 20120706

REACTIONS (2)
  - PERICARDIAL EFFUSION [None]
  - PULMONARY EMBOLISM [None]
